FAERS Safety Report 9481912 (Version 1)
Quarter: 2013Q3

REPORT INFORMATION
  Report Type: Spontaneous
  Country: US (occurrence: US)
  Receive Date: 20130828
  Receipt Date: 20130828
  Transmission Date: 20140515
  Serious: No
  Sender: FDA-Public Use
  Company Number: US-009507513-1308USA011138

PATIENT
  Age: 75 Year
  Sex: Female

DRUGS (4)
  1. SIMVASTATIN [Suspect]
     Indication: BLOOD CHOLESTEROL INCREASED
     Dosage: 10 MG, HS
     Route: 048
     Dates: end: 2012
  2. PREMPRO [Concomitant]
     Dosage: UNKNOWN
  3. VALIUM [Concomitant]
     Dosage: UNKNOWN
  4. VITAMIN D (UNSPECIFIED) [Concomitant]
     Dosage: UNKNOWN

REACTIONS (1)
  - Memory impairment [Recovered/Resolved]
